FAERS Safety Report 7621791-2 (Version None)
Quarter: 2011Q3

REPORT INFORMATION
  Report Type: 
  Country: None (occurrence: None)
  Receive Date: 20110720
  Receipt Date: 20110711
  Transmission Date: 20111222
  Serious: Yes (Hospitalization)
  Sender: FDA-Public Use
  Company Number: US-BIOGENIDEC-2009BI019645

PATIENT
  Age: 64 Year
  Sex: Female

DRUGS (2)
  1. TYSABRI [Suspect]
     Route: 042
     Dates: start: 20110404
  2. TYSABRI [Suspect]
     Indication: MULTIPLE SCLEROSIS
     Route: 042
     Dates: start: 20080107, end: 20101001

REACTIONS (8)
  - EPILEPSY [None]
  - MUSCULAR WEAKNESS [None]
  - ASTHENIA [None]
  - DYSGRAPHIA [None]
  - URINARY INCONTINENCE [None]
  - CALCULUS BLADDER [None]
  - ANKLE FRACTURE [None]
  - FATIGUE [None]
